FAERS Safety Report 5107576-X (Version None)
Quarter: 2006Q3

REPORT INFORMATION
  Report Type: 
  Country: None (occurrence: None)
  Receive Date: 20060913
  Receipt Date: 20060913
  Transmission Date: 20061208
  Serious: Yes (Hospitalization)
  Sender: FDA-Public Use
  Company Number: None

PATIENT
  Age: 66 Year
  Sex: Male
  Weight: 67.1324 kg

DRUGS (11)
  1. ROPINIROLE [Suspect]
     Indication: PARKINSON'S DISEASE
     Dosage: 15 MG TID
     Dates: start: 20060831, end: 20060903
  2. ROPINIROLE [Suspect]
  3. AMANTADINE HCL [Concomitant]
  4. LEVODOPA [Concomitant]
  5. CARBIDOPA [Concomitant]
  6. COMTAN [Concomitant]
  7. DICLOFENAC SODIUM [Concomitant]
  8. FOSAMAX [Concomitant]
  9. GABAPENTIN [Concomitant]
  10. VICODIN [Concomitant]
  11. EFFEXOR [Concomitant]

REACTIONS (6)
  - ABNORMAL BEHAVIOUR [None]
  - AGITATION [None]
  - CONFUSIONAL STATE [None]
  - DYSKINESIA [None]
  - HYPERKINESIA [None]
  - MENTAL STATUS CHANGES [None]
